FAERS Safety Report 18682189 (Version 1)
Quarter: 2020Q4

REPORT INFORMATION
  Report Type: Other
  Country: CA (occurrence: CA)
  Receive Date: 20201229
  Receipt Date: 20201229
  Transmission Date: 20210114
  Serious: Yes (Other)
  Sender: FDA-Public Use
  Company Number: CA-CELLTRION INC.-2020CA034517

PATIENT

DRUGS (20)
  1. ENBREL [Suspect]
     Active Substance: ETANERCEPT
     Indication: RHEUMATOID ARTHRITIS
     Dosage: 50 MG, 1 EVERY 1 WEEKS
     Route: 065
  2. METHOTREXATE. [Suspect]
     Active Substance: METHOTREXATE
     Dosage: 12.5 MG, 1 EVERY 24 HOURS
     Route: 065
  3. REMICADE [Suspect]
     Active Substance: INFLIXIMAB
     Indication: RHEUMATOID ARTHRITIS
     Dosage: 1000 MG
     Route: 042
  4. ARAVA [Suspect]
     Active Substance: LEFLUNOMIDE
     Dosage: 10 MG, 1 EVERY 3 WEEKS
     Route: 048
  5. HYDROXYCHLOROQUINE SULFATE. [Suspect]
     Active Substance: HYDROXYCHLOROQUINE SULFATE
     Indication: RHEUMATOID ARTHRITIS
     Dosage: UNK
     Route: 065
  6. METHOTREXATE. [Suspect]
     Active Substance: METHOTREXATE
     Indication: RHEUMATOID ARTHRITIS
     Dosage: UNK
     Route: 030
  7. METHOTREXATE. [Suspect]
     Active Substance: METHOTREXATE
     Dosage: 12.5 MG
     Route: 058
  8. HUMIRA [Suspect]
     Active Substance: ADALIMUMAB
     Indication: RHEUMATOID ARTHRITIS
     Dosage: 40 MG
     Route: 058
  9. ARAVA [Suspect]
     Active Substance: LEFLUNOMIDE
     Dosage: UNK
     Route: 065
  10. METHOTREXATE. [Suspect]
     Active Substance: METHOTREXATE
     Dosage: UNK
     Route: 065
  11. RITUXIMAB (UNKNOWN) [Suspect]
     Active Substance: RITUXIMAB
     Indication: RHEUMATOID ARTHRITIS
     Dosage: 1000 MG
     Route: 065
  12. REMICADE [Suspect]
     Active Substance: INFLIXIMAB
     Indication: RHEUMATOID ARTHRITIS
     Dosage: 200 MG
     Route: 042
  13. RITUXIMAB (UNKNOWN) [Suspect]
     Active Substance: RITUXIMAB
     Dosage: UNK
     Route: 042
  14. ARAVA [Suspect]
     Active Substance: LEFLUNOMIDE
     Dosage: 10 MG, 1 EVERY 24 HOURS
     Route: 048
  15. HYDROXYCHLOROQUINE SULFATE. [Suspect]
     Active Substance: HYDROXYCHLOROQUINE SULFATE
     Dosage: UNK
     Route: 065
  16. ARAVA [Suspect]
     Active Substance: LEFLUNOMIDE
     Indication: RHEUMATOID ARTHRITIS
     Dosage: 10 MG
     Route: 048
  17. ARAVA [Suspect]
     Active Substance: LEFLUNOMIDE
     Dosage: 200 MG
     Route: 048
  18. HUMIRA [Suspect]
     Active Substance: ADALIMUMAB
     Indication: RHEUMATOID ARTHRITIS
     Dosage: 40 MG
     Route: 058
  19. METHOTREXATE. [Suspect]
     Active Substance: METHOTREXATE
     Dosage: 12.5 MG, 1 EVERY 1 WEEKS
     Route: 058
  20. METHOTREXATE. [Suspect]
     Active Substance: METHOTREXATE
     Indication: RHEUMATOID ARTHRITIS
     Dosage: 12.5 MG
     Route: 065

REACTIONS (3)
  - Nausea [Unknown]
  - Drug ineffective [Unknown]
  - Drug intolerance [Unknown]
